FAERS Safety Report 9518483 (Version 1)
Quarter: 2013Q3

REPORT INFORMATION
  Report Type: Spontaneous
  Country: US (occurrence: None)
  Receive Date: 20130910
  Receipt Date: 20130910
  Transmission Date: 20140515
  Serious: Yes (Other)
  Sender: FDA-Public Use
  Company Number: 2013P1018998

PATIENT
  Age: 39 Year
  Sex: Female
  Weight: 50.35 kg

DRUGS (6)
  1. AZO STANDARD [Suspect]
     Indication: URINARY TRACT INFECTION
     Dosage: 1 TABLET
     Route: 048
     Dates: start: 20130802, end: 201308
  2. VITAMIN E [Concomitant]
  3. OMEGA 3 [Concomitant]
  4. OMEGA 6 FATTY ACIDS [Concomitant]
  5. LUCITING [Concomitant]
  6. OMEGA 9 [Concomitant]

REACTIONS (9)
  - Abdominal discomfort [None]
  - Vomiting [None]
  - Burning sensation [None]
  - Urinary tract infection [None]
  - Condition aggravated [None]
  - Pregnancy test positive [None]
  - Abortion spontaneous [None]
  - Vaginal haemorrhage [None]
  - Exposure during pregnancy [None]
